FAERS Safety Report 10021403 (Version 1)
Quarter: 2014Q1

REPORT INFORMATION
  Report Type: Spontaneous
  Country: IN (occurrence: None)
  Receive Date: 20140313
  Receipt Date: 20140313
  Transmission Date: 20141002
  Serious: Yes (Other)
  Sender: FDA-Public Use
  Company Number: IPC201403-000109

PATIENT
  Age: 52 Year
  Sex: Female

DRUGS (4)
  1. ATENOLOL (ATENOLOL) (ATENOLOL) [Suspect]
     Indication: HYPERTENSION
     Route: 048
  2. LEVOTHYROXINE (LEVOTHYROXINE) (LEVOTHYROXINE) [Concomitant]
  3. METFORMIN (METFORMIN) (METFORMIN) [Concomitant]
  4. CALCIUM [Concomitant]

REACTIONS (3)
  - Hepatotoxicity [None]
  - Hepatitis acute [None]
  - Diastolic hypertension [None]
